FAERS Safety Report 10004445 (Version 1)
Quarter: 2014Q1

REPORT INFORMATION
  Report Type: Spontaneous
  Country: US (occurrence: US)
  Receive Date: 20140312
  Receipt Date: 20140312
  Transmission Date: 20141002
  Serious: No
  Sender: FDA-Public Use
  Company Number: US-PFIZER INC-2014071488

PATIENT
  Age: 66 Year
  Sex: Female
  Weight: 48.07 kg

DRUGS (1)
  1. XELJANZ [Suspect]
     Indication: RHEUMATOID ARTHRITIS
     Dosage: UNK
     Dates: start: 20140218

REACTIONS (6)
  - Pain in extremity [Unknown]
  - Pyrexia [Unknown]
  - Influenza like illness [Unknown]
  - Arthralgia [Unknown]
  - Abdominal discomfort [Unknown]
  - Decreased appetite [Unknown]
